FAERS Safety Report 24927989 (Version 1)
Quarter: 2025Q1

REPORT INFORMATION
  Report Type: Report from Study
  Country: US (occurrence: US)
  Receive Date: 20250205
  Receipt Date: 20250205
  Transmission Date: 20250408
  Serious: Yes (Hospitalization)
  Sender: PAREXEL
  Company Number: US-STEMLINE THERAPEUTICS B.V.-2024-STML-US006304

PATIENT

DRUGS (1)
  1. ORSERDU [Suspect]
     Active Substance: ELACESTRANT
     Indication: Breast cancer female
     Dosage: 345 MG, DAILY
     Route: 048
     Dates: start: 20241008

REACTIONS (3)
  - Blood calcium abnormal [Unknown]
  - Pain [Unknown]
  - Nausea [Unknown]

NARRATIVE: CASE EVENT DATE: 20240101
